FAERS Safety Report 4577144-7 (Version None)
Quarter: 2005Q1

REPORT INFORMATION
  Report Type: 
  Country: None (occurrence: None)
  Receive Date: 20050210
  Receipt Date: 20050131
  Transmission Date: 20050727
  Serious: Yes (Hospitalization)
  Sender: FDA-Public Use
  Company Number: FI-ROCHE-393998

PATIENT
  Age: 56 Year
  Sex: Female

DRUGS (8)
  1. CAPECITABINE [Suspect]
     Indication: BREAST CANCER
     Dosage: GIVEN ON DAYS 1 - 7 OF A 14 DAY CYCLE.
     Route: 065
  2. PACLITAXEL [Suspect]
     Indication: BREAST CANCER
     Dosage: GIVEN ON DAY 1 OF A 14 DAY CYCLE.
     Route: 042
     Dates: start: 20050113, end: 20050127
  3. PACLITAXEL [Suspect]
     Dosage: GIVEN ON DAY 1 OF A 14 DAY CYCLE.
     Route: 042
     Dates: start: 20050127
  4. DESAMETASONE [Concomitant]
  5. RANITIDINE [Concomitant]
  6. PROMETAZINA [Concomitant]
  7. ANASTROZOLE [Concomitant]
  8. CETIRIZINE HCL [Concomitant]

REACTIONS (1)
  - INFUSION RELATED REACTION [None]
